FAERS Safety Report 18499920 (Version 1)
Quarter: 2020Q4

REPORT INFORMATION
  Report Type: Spontaneous
  Country: US (occurrence: US)
  Receive Date: 20201112
  Receipt Date: 20201112
  Transmission Date: 20210114
  Serious: Yes (Hospitalization, Disabling, Other)
  Sender: FDA-Public Use
  Company Number: US-ABBVIE-20K-163-3646082-00

PATIENT
  Sex: Male
  Weight: 99.88 kg

DRUGS (1)
  1. IMBRUVICA [Suspect]
     Active Substance: IBRUTINIB
     Indication: CHRONIC LYMPHOCYTIC LEUKAEMIA
     Route: 048
     Dates: start: 202003, end: 2020

REACTIONS (7)
  - Post procedural complication [Unknown]
  - Procedural pain [Unknown]
  - Impaired work ability [Unknown]
  - Nerve injury [Unknown]
  - Injury [Unknown]
  - Scar [Unknown]
  - Swelling [Not Recovered/Not Resolved]

NARRATIVE: CASE EVENT DATE: 2020
